FAERS Safety Report 6269092-1 (Version None)
Quarter: 2009Q3

REPORT INFORMATION
  Report Type: 
  Country: None (occurrence: None)
  Receive Date: 20090715
  Receipt Date: 20090709
  Transmission Date: 20100115
  Serious: Yes (Hospitalization, Disabling)
  Sender: FDA-Public Use
  Company Number: US-MERCK-0905USA02919

PATIENT
  Age: 54 Year
  Sex: Female

DRUGS (1)
  1. ZOLINZA [Suspect]
     Indication: MYCOSIS FUNGOIDES
     Route: 048
     Dates: start: 20090324, end: 20090518

REACTIONS (5)
  - ERYTHEMA [None]
  - MYCOSIS FUNGOIDES [None]
  - PRURITUS [None]
  - RASH [None]
  - SKIN PLAQUE [None]
